FAERS Safety Report 24628209 (Version 1)
Quarter: 2024Q4

REPORT INFORMATION
  Report Type: Spontaneous
  Country: US (occurrence: US)
  Receive Date: 20241117
  Receipt Date: 20241117
  Transmission Date: 20250114
  Serious: No
  Sender: SANOFI AVENTIS
  Company Number: US-SANOFI-02297349

PATIENT
  Sex: Female

DRUGS (1)
  1. DUPIXENT [Suspect]
     Active Substance: DUPILUMAB
     Indication: Asthma
     Dosage: UNK

REACTIONS (6)
  - Fatigue [Unknown]
  - Injection site urticaria [Unknown]
  - Condition aggravated [Unknown]
  - Myalgia [Unknown]
  - Injection site erythema [Unknown]
  - Arthralgia [Unknown]
